FAERS Safety Report 20717501 (Version 2)
Quarter: 2022Q2

REPORT INFORMATION
  Report Type: Report from Study
  Country: DE (occurrence: DE)
  Receive Date: 20220417
  Receipt Date: 20220506
  Transmission Date: 20220721
  Serious: Yes (Death, Hospitalization)
  Sender: FDA-Public Use
  Company Number: DE-EMA-DD-20210107-abdul_j-113201

PATIENT
  Sex: Female
  Weight: 81 kg

DRUGS (6)
  1. FULVESTRANT [Suspect]
     Active Substance: FULVESTRANT
     Indication: Breast cancer metastatic
     Dosage: 250 MG, Q4W
     Route: 030
     Dates: start: 20201016, end: 20201226
  2. KISQALI [Suspect]
     Active Substance: RIBOCICLIB
     Indication: Breast cancer metastatic
     Dosage: 600 MILLIGRAM DAILY; (SCHEMA 21 DAYS INTAKE, 7 DAYS PAUSE)
     Route: 048
     Dates: start: 20201016
  3. KISQALI [Suspect]
     Active Substance: RIBOCICLIB
     Dosage: 600 MILLIGRAM DAILY;  (SCHEMA 21 DAYS INTAKE, 7 DAYS PAUSE), THERAPY START DATE : ASKED BUT UNKNOWN,
     Route: 048
     Dates: end: 20201226
  4. LEVOTHYROXINE SODIUM [Concomitant]
     Active Substance: LEVOTHYROXINE SODIUM
     Indication: Thyroid disorder
     Dosage: 50 MILLIGRAM DAILY;
     Route: 065
     Dates: start: 1991
  5. FEXOFENADINE HYDROCHLORIDE [Concomitant]
     Active Substance: FEXOFENADINE HYDROCHLORIDE
     Indication: Dermatitis allergic
     Dosage: 180 MILLIGRAM DAILY;
     Route: 048
     Dates: start: 2018
  6. METAMIZOLE [Concomitant]
     Active Substance: METAMIZOLE
     Indication: Pain
     Dosage: AS NEEDED
     Route: 065
     Dates: start: 202008

REACTIONS (5)
  - General physical health deterioration [Fatal]
  - Breast cancer metastatic [Fatal]
  - Pleural effusion [Recovering/Resolving]
  - Pneumonia [Recovered/Resolved with Sequelae]
  - Cough [Unknown]

NARRATIVE: CASE EVENT DATE: 20201103
